FAERS Safety Report 9278777 (Version 1)
Quarter: 2013Q2

REPORT INFORMATION
  Report Type: Spontaneous
  Country: SV (occurrence: None)
  Receive Date: 20130501
  Receipt Date: 20130501
  Transmission Date: 20140414
  Serious: Yes (Hospitalization, Other)
  Sender: FDA-Public Use
  Company Number: 2013P1005005

PATIENT
  Age: 88 Year
  Sex: Female

DRUGS (8)
  1. SULFAMETHOXAZOLE AND TRIMETHOPRIM [Suspect]
     Indication: CYSTITIS
     Dates: start: 200602
  2. METHOTREXATE [Suspect]
     Indication: RHEUMATOID ARTHRITIS
  3. FOLIC ACID [Concomitant]
  4. ASASANTIN [Concomitant]
  5. NIFEDIPINE [Concomitant]
  6. ESCITALOPRAM [Concomitant]
  7. REPAGLINIDE [Concomitant]
  8. BISOPROLOL [Concomitant]

REACTIONS (12)
  - Cerebrovascular accident [None]
  - Cystitis [None]
  - Fatigue [None]
  - Gingival bleeding [None]
  - Pain [None]
  - Petechiae [None]
  - Haematoma [None]
  - Pancytopenia [None]
  - Body temperature increased [None]
  - Blood albumin decreased [None]
  - Toxicity to various agents [None]
  - Drug interaction [None]
